FAERS Safety Report 24936714 (Version 1)
Quarter: 2025Q1

REPORT INFORMATION
  Report Type: Spontaneous
  Country: US (occurrence: US)
  Receive Date: 20250206
  Receipt Date: 20250206
  Transmission Date: 20250408
  Serious: No
  Sender: OTSUKA
  Company Number: US-OTSUKA-2025_000565

PATIENT
  Age: 40 Year
  Sex: Female

DRUGS (2)
  1. ABILIFY ASIMTUFII [Suspect]
     Active Substance: ARIPIPRAZOLE
     Indication: Schizophrenia
     Route: 065
     Dates: start: 202405
  2. ABILIFY MAINTENA [Suspect]
     Active Substance: ARIPIPRAZOLE
     Indication: Schizophrenia
     Route: 065
     Dates: start: 2022

REACTIONS (1)
  - Alopecia [Unknown]
